FAERS Safety Report 18941897 (Version 1)
Quarter: 2021Q1

REPORT INFORMATION
  Report Type: Spontaneous
  Country: FR (occurrence: FR)
  Receive Date: 20210225
  Receipt Date: 20210225
  Transmission Date: 20210420
  Serious: Yes (Life-Threatening, Hospitalization)
  Sender: FDA-Public Use
  Company Number: FR-TEVA-2021-FR-1883448

PATIENT
  Age: 7 Year
  Sex: Female
  Weight: 21.3 kg

DRUGS (9)
  1. BACTRIM [Suspect]
     Active Substance: SULFAMETHOXAZOLE\TRIMETHOPRIM
     Indication: OSTEOMYELITIS BACTERIAL
     Dosage: 350 MG TRIMETHOPRIM 2X / D + 70 MG SULFAMETHOXAZOLE 2X / D:UNIT DOSE:2DOSAGEFORM
     Route: 048
     Dates: start: 20201207, end: 20201231
  2. AMIKACINE [Concomitant]
     Active Substance: AMIKACIN
  3. DOLIPRANE [Suspect]
     Active Substance: ACETAMINOPHEN
     Indication: PYREXIA
     Dosage: IF NECESSARY
     Route: 048
     Dates: start: 20201206, end: 20210109
  4. AMOXICILLINE ACIDE CLAVULANIQUE SANDOZ [Suspect]
     Active Substance: AMOXICILLIN\CLAVULANATE POTASSIUM
     Indication: OSTEOMYELITIS BACTERIAL
     Dosage: 3DOSAGEFORM
     Route: 048
     Dates: start: 20201201, end: 20201203
  5. AMOXICILLINE PANPHARMA 1 G, POUDRE POUR SOLUTION INJECTABLE [Suspect]
     Active Substance: AMOXICILLIN SODIUM
     Indication: OSTEOMYELITIS BACTERIAL
     Dosage: 3DOSAGEFORM
     Route: 042
     Dates: start: 20201203, end: 20201206
  6. AUGMENTIN [Suspect]
     Active Substance: AMOXICILLIN\CLAVULANATE POTASSIUM
     Indication: OSTEOMYELITIS BACTERIAL
     Dosage: 50ML
     Route: 041
     Dates: start: 20201127, end: 20201130
  7. HYDROXYZINE (CHLORHYDRATE D^) [Suspect]
     Active Substance: HYDROXYZINE HYDROCHLORIDE
     Indication: PRODUCT USED FOR UNKNOWN INDICATION
     Route: 048
     Dates: end: 20210109
  8. NORADRENALINE [Concomitant]
     Active Substance: NOREPINEPHRINE
  9. TEICOPLANINE [Suspect]
     Active Substance: TEICOPLANIN
     Indication: OSTEOMYELITIS BACTERIAL
     Route: 041
     Dates: start: 20210108, end: 20210109

REACTIONS (1)
  - Drug reaction with eosinophilia and systemic symptoms [Not Recovered/Not Resolved]

NARRATIVE: CASE EVENT DATE: 20201224
